FAERS Safety Report 7506764-2 (Version None)
Quarter: 2011Q2

REPORT INFORMATION
  Report Type: 
  Country: None (occurrence: None)
  Receive Date: 20110526
  Receipt Date: 20110523
  Transmission Date: 20111010
  Serious: No
  Sender: FDA-Public Use
  Company Number: US-PFIZER INC-2011111935

PATIENT
  Sex: Male

DRUGS (2)
  1. ARICEPT [Concomitant]
     Indication: DEMENTIA
     Dosage: UNK
  2. LIPITOR [Suspect]
     Indication: BLOOD CHOLESTEROL ABNORMAL
     Dosage: UNK
     Dates: end: 20110301

REACTIONS (1)
  - SKIN DISCOLOURATION [None]
